FAERS Safety Report 19220472 (Version 1)
Quarter: 2021Q2

REPORT INFORMATION
  Report Type: Spontaneous
  Country: DE (occurrence: DE)
  Receive Date: 20210505
  Receipt Date: 20210505
  Transmission Date: 20210717
  Serious: Yes (Hospitalization)
  Sender: FDA-Public Use
  Company Number: DE-ASTRAZENECA-2021A374853

PATIENT
  Age: 63 Year
  Sex: Male

DRUGS (10)
  1. ACLIDINIUM [Concomitant]
     Active Substance: ACLIDINIUM BROMIDE
     Dosage: 1?0?1
  2. PREDNISOLONE. [Concomitant]
     Active Substance: PREDNISOLONE
     Dosage: 10 DAYS
  3. SALBUTAMOL [Concomitant]
     Active Substance: ALBUTEROL
  4. DOXYCYCLINE. [Concomitant]
     Active Substance: DOXYCYCLINE
     Dosage: 10 DAYS
  5. FLUTICASONE/SALMETEROL [Concomitant]
     Active Substance: FLUTICASONE PROPIONATE\SALMETEROL XINAFOATE
  6. SECRETOLYTICS [Concomitant]
  7. UNACID [Concomitant]
     Dosage: 3X3G
  8. GYCOPYRRONIUM [Concomitant]
     Dosage: 44UG 1?0?0
  9. VILANTEROL/FLUTICASONE FUROATE [Concomitant]
     Active Substance: FLUTICASONE FUROATE\VILANTEROL TRIFENATATE
     Dosage: 92/22MG
  10. ACLIDINIUM [Suspect]
     Active Substance: ACLIDINIUM BROMIDE
     Indication: CHRONIC OBSTRUCTIVE PULMONARY DISEASE
     Dosage: TWO TIMES A DAY
     Route: 055

REACTIONS (2)
  - Wheezing [Recovered/Resolved]
  - Dyspnoea [Recovered/Resolved]

NARRATIVE: CASE EVENT DATE: 201504
